FAERS Safety Report 4498892-3 (Version None)
Quarter: 2004Q3

REPORT INFORMATION
  Report Type: 
  Country: None (occurrence: None)
  Receive Date: 20040927
  Receipt Date: 20040622
  Transmission Date: 20050211
  Serious: No
  Sender: FDA-Public Use
  Company Number: USA040670822

PATIENT
  Sex: Male

DRUGS (2)
  1. STRATTERA [Suspect]
     Indication: ATTENTION DEFICIT/HYPERACTIVITY DISORDER
     Dosage: 40 MG / 1 IN THE MORNING
     Dates: start: 20040622
  2. ZOCOR [Concomitant]

REACTIONS (2)
  - COLD SWEAT [None]
  - RETCHING [None]
